FAERS Safety Report 9513061 (Version 1)
Quarter: 2013Q3

REPORT INFORMATION
  Report Type: Spontaneous
  Country: US (occurrence: US)
  Receive Date: 20130910
  Receipt Date: 20130910
  Transmission Date: 20140515
  Serious: Yes (Death)
  Sender: FDA-Public Use
  Company Number: US-PFIZER INC-2013256914

PATIENT
  Age: 57 Year
  Sex: Female

DRUGS (1)
  1. SUTENT [Suspect]
     Indication: COLORECTAL CANCER
     Dosage: 50 MG, UNK
     Dates: start: 20130711

REACTIONS (2)
  - Disease progression [Fatal]
  - Colorectal cancer [Fatal]
